FAERS Safety Report 13672633 (Version 1)
Quarter: 2017Q2

REPORT INFORMATION
  Report Type: Spontaneous
  Country: FR (occurrence: FR)
  Receive Date: 20170621
  Receipt Date: 20170621
  Transmission Date: 20170830
  Serious: Yes (Hospitalization, Other)
  Sender: FDA-Public Use
  Company Number: FR-GLAXOSMITHKLINE-B0474480A

PATIENT
  Age: 51 Year
  Sex: Female

DRUGS (12)
  1. STERDEX [Concomitant]
     Active Substance: DEXAMETHASONE\OXYTETRACYCLINE
     Dosage: UNK UNK, U
     Route: 065
  2. LOMEXIN [Concomitant]
     Active Substance: FENTICONAZOLE NITRATE
     Dosage: UNK UNK, U
     Route: 065
  3. DAKTARIN [Concomitant]
     Active Substance: MICONAZOLE NITRATE
     Dosage: UNK UNK, U
     Route: 065
  4. LAMICTAL [Suspect]
     Active Substance: LAMOTRIGINE
     Indication: EPILEPSY
     Dosage: UNK UNK, U
     Route: 048
     Dates: start: 20070115, end: 20070515
  5. ZECLAR [Concomitant]
     Active Substance: CLARITHROMYCIN
     Dosage: UNK UNK, U
     Route: 048
  6. MAGNOGENE [Concomitant]
     Dosage: UNK UNK, U
     Route: 065
  7. DEPAKINE [Concomitant]
     Active Substance: VALPROATE SODIUM
     Dosage: UNK UNK, U
     Route: 048
  8. TRIFLUCAN [Concomitant]
     Active Substance: FLUCONAZOLE
     Dosage: UNK UNK, U
     Route: 048
  9. DIFFU-K [Concomitant]
     Active Substance: POTASSIUM CHLORIDE
     Dosage: UNK UNK, U
     Route: 065
  10. MAXILASE [Concomitant]
     Active Substance: PANCRELIPASE
     Dosage: UNK UNK, U
     Route: 048
  11. PARIET [Concomitant]
     Active Substance: RABEPRAZOLE SODIUM
     Dosage: UNK UNK, U
     Route: 048
  12. MEDROL [Concomitant]
     Active Substance: METHYLPREDNISOLONE
     Dosage: UNK UNK, U
     Route: 065

REACTIONS (23)
  - Skin lesion [Unknown]
  - Pyrexia [Unknown]
  - Skin disorder [Recovering/Resolving]
  - Nikolsky^s sign [Unknown]
  - Urine output decreased [Unknown]
  - Pharyngitis [Unknown]
  - Rash maculo-papular [Unknown]
  - Respiratory distress [Unknown]
  - Face oedema [Unknown]
  - Keratitis [Recovering/Resolving]
  - Dysphagia [Unknown]
  - Vaginal ulceration [Unknown]
  - Toxic epidermal necrolysis [Recovered/Resolved]
  - General physical health deterioration [Unknown]
  - Interstitial lung disease [Unknown]
  - Septic shock [Unknown]
  - Oral mucosal eruption [Unknown]
  - Oedema mucosal [Unknown]
  - Hemiparesis [Unknown]
  - Stevens-Johnson syndrome [Not Recovered/Not Resolved]
  - Facial paralysis [Unknown]
  - Urinary tract disorder [Unknown]
  - Dysphagia [Unknown]

NARRATIVE: CASE EVENT DATE: 20070502
